FAERS Safety Report 9275396 (Version 1)
Quarter: 2013Q2

REPORT INFORMATION
  Report Type: Spontaneous
  Country: US (occurrence: US)
  Receive Date: 20130507
  Receipt Date: 20130507
  Transmission Date: 20140414
  Serious: No
  Sender: FDA-Public Use
  Company Number: US-PFIZER INC-2013138409

PATIENT
  Sex: Female

DRUGS (12)
  1. XELJANZ [Suspect]
     Indication: RHEUMATOID ARTHRITIS
     Dosage: 5 MG, 2X/DAY
     Route: 048
     Dates: start: 201303
  2. SINGULAIR [Concomitant]
     Dosage: UNK
  3. FOLIC ACID [Concomitant]
     Dosage: UNK
  4. GABAPENTIN [Concomitant]
     Dosage: UNK
  5. ADVAIR DISKUS [Concomitant]
     Dosage: 250-50, UNK
  6. CELEXA [Concomitant]
     Dosage: 40 MG, UNK
  7. MAGNESIUM OXIDE [Concomitant]
     Dosage: UNK
  8. SPIRIVA [Concomitant]
     Dosage: UNK
  9. ZANAFLEX [Concomitant]
     Dosage: UNK
  10. PLAVIX [Concomitant]
     Dosage: 75 MG, UNK
  11. OXYCODONE HYDROCHLORIDE [Concomitant]
     Dosage: 5 MG, 2X/DAY
  12. ASPIRIN (E.C.) [Concomitant]
     Dosage: 81 MG, UNK

REACTIONS (1)
  - Amnesia [Unknown]
